FAERS Safety Report 14392243 (Version 3)
Quarter: 2018Q1

REPORT INFORMATION
  Report Type: Spontaneous
  Country: US (occurrence: US)
  Receive Date: 20180116
  Receipt Date: 20180206
  Transmission Date: 20180509
  Serious: Yes (Hospitalization, Other)
  Sender: FDA-Public Use
  Company Number: US-GLAXOSMITHKLINE-US2018GSK005642

PATIENT
  Age: 45 Year
  Sex: Male

DRUGS (3)
  1. FLOLAN [Suspect]
     Active Substance: EPOPROSTENOL SODIUM
     Indication: PULMONARY ARTERIAL HYPERTENSION
     Dosage: 12.5 DF, CO
     Dates: start: 20171220
  2. ADCIRCA [Concomitant]
     Active Substance: TADALAFIL
  3. FLOLAN [Suspect]
     Active Substance: EPOPROSTENOL SODIUM
     Indication: PULMONARY ARTERIAL HYPERTENSION
     Dosage: UNK
     Dates: start: 20171220

REACTIONS (4)
  - Hospitalisation [Unknown]
  - Hypertension [Unknown]
  - Adverse event [Unknown]
  - Swelling [Unknown]

NARRATIVE: CASE EVENT DATE: 20180110
